FAERS Safety Report 15139163 (Version 1)
Quarter: 2018Q3

REPORT INFORMATION
  Report Type: Spontaneous
  Country: ZA (occurrence: ZA)
  Receive Date: 20180713
  Receipt Date: 20180713
  Transmission Date: 20181010
  Serious: Yes (Hospitalization)
  Sender: FDA-Public Use
  Company Number: ZA-DRREDDYS-SAF/SAF/18/0101660

PATIENT
  Sex: Female

DRUGS (10)
  1. AUSTELL FUROSEMIDE [Suspect]
     Active Substance: FUROSEMIDE
     Indication: DIURETIC THERAPY
     Route: 048
  2. PURICOS [Suspect]
     Active Substance: ALLOPURINOL
     Indication: GOUT
     Route: 048
  3. ZARTAN [Suspect]
     Active Substance: LOSARTAN POTASSIUM
     Indication: HYPERTENSION
     Route: 048
  4. ULSANIC TAB [Suspect]
     Active Substance: SUCRALFATE
     Indication: PRODUCT USED FOR UNKNOWN INDICATION
     Route: 048
  5. EUTHYROX [Suspect]
     Active Substance: LEVOTHYROXINE SODIUM
     Indication: THYROID THERAPY
     Route: 048
  6. DISC DIAMOX [Suspect]
     Active Substance: ACETAZOLAMIDE
     Indication: DIURETIC THERAPY
     Route: 048
  7. LIVIFEM [Suspect]
     Active Substance: TIBOLONE
     Indication: HORMONE REPLACEMENT THERAPY
     Route: 048
  8. IVEDAL [Suspect]
     Active Substance: ZOLPIDEM TARTRATE
     Indication: INSOMNIA
     Route: 048
  9. LYRICA [Suspect]
     Active Substance: PREGABALIN
     Indication: PAIN
     Route: 048
  10. OMEZ [Suspect]
     Active Substance: OMEPRAZOLE
     Indication: ULCER
     Route: 048

REACTIONS (1)
  - Cholelithiasis [Unknown]
